FAERS Safety Report 8307675-5 (Version None)
Quarter: 2012Q2

REPORT INFORMATION
  Report Type: 
  Country: None (occurrence: None)
  Receive Date: 20120424
  Receipt Date: 20120424
  Transmission Date: 20120825
  Serious: No
  Sender: FDA-Public Use
  Company Number: None

PATIENT
  Age: 51 Year
  Sex: Female
  Weight: 59.874 kg

DRUGS (1)
  1. RECLAST [Suspect]

REACTIONS (2)
  - PAIN [None]
  - QUALITY OF LIFE DECREASED [None]
